FAERS Safety Report 10169705 (Version 1)
Quarter: 2014Q2

REPORT INFORMATION
  Report Type: Spontaneous
  Country: FR (occurrence: FR)
  Receive Date: 20140513
  Receipt Date: 20140513
  Transmission Date: 20141212
  Serious: Yes (Other)
  Sender: FDA-Public Use
  Company Number: FR-PFIZER INC-2014126013

PATIENT
  Age: 65 Year
  Sex: Male

DRUGS (2)
  1. ZYVOXID [Suspect]
     Dosage: 600 MG, 1X/DAY
     Dates: end: 201404
  2. LAMPRENE [Concomitant]

REACTIONS (9)
  - Polyneuropathy [Not Recovered/Not Resolved]
  - Serotonin syndrome [Not Recovered/Not Resolved]
  - Lung operation [Unknown]
  - Cranial nerve disorder [Not Recovered/Not Resolved]
  - Dysphagia [Not Recovered/Not Resolved]
  - Speech disorder [Not Recovered/Not Resolved]
  - Hallucination [Not Recovered/Not Resolved]
  - Myoclonus [Not Recovered/Not Resolved]
  - Weight decreased [Unknown]
